FAERS Safety Report 8361742-9 (Version None)
Quarter: 2012Q2

REPORT INFORMATION
  Report Type: 
  Country: None (occurrence: None)
  Receive Date: 20120514
  Receipt Date: 20120504
  Transmission Date: 20120825
  Serious: Yes (Hospitalization)
  Sender: FDA-Public Use
  Company Number: 2012SP024481

PATIENT
  Age: 78 Year
  Sex: Female

DRUGS (6)
  1. CALCIPARINE [Suspect]
     Indication: PRODUCT USED FOR UNKNOWN INDICATION
     Dosage: 0.2 ML;BID;SC
     Route: 058
     Dates: start: 20110827, end: 20110909
  2. PRAMIPEXOLE DIHYDROCHLORIDE [Concomitant]
  3. XALATAN [Concomitant]
  4. EFFEXOR [Concomitant]
  5. ORGARAN [Suspect]
     Indication: PRODUCT USED FOR UNKNOWN INDICATION
     Dosage: 0.6 ML;BID;SC
     Route: 058
     Dates: start: 20010909, end: 20110928
  6. MODOPAR [Concomitant]

REACTIONS (6)
  - INJECTION SITE INDURATION [None]
  - INJECTION SITE REACTION [None]
  - INJECTION SITE NODULE [None]
  - INJECTION SITE NECROSIS [None]
  - SKIN LESION [None]
  - CALCINOSIS [None]
